FAERS Safety Report 9686716 (Version 5)
Quarter: 2019Q1

REPORT INFORMATION
  Report Type: Spontaneous
  Country: US (occurrence: US)
  Receive Date: 20131113
  Receipt Date: 20190226
  Transmission Date: 20190418
  Serious: No
  Sender: FDA-Public Use
  Company Number: US-PFIZER INC-2013322894

PATIENT
  Age: 36 Year
  Sex: Male

DRUGS (1)
  1. GABAPENTIN. [Suspect]
     Active Substance: GABAPENTIN
     Dosage: UNK

REACTIONS (6)
  - Drug hypersensitivity [Unknown]
  - Dizziness [Unknown]
  - Depression [Unknown]
  - Irritability [Unknown]
  - Anxiety [Unknown]
  - Hypertension [Unknown]
